FAERS Safety Report 8152798-7 (Version None)
Quarter: 2012Q1

REPORT INFORMATION
  Report Type: 
  Country: None (occurrence: None)
  Receive Date: 20120221
  Receipt Date: 20111207
  Transmission Date: 20120608
  Serious: Yes (Other)
  Sender: FDA-Public Use
  Company Number: CA-JNJFOC-20120110702

PATIENT
  Sex: Female
  Weight: 68.5 kg

DRUGS (8)
  1. REMICADE [Suspect]
     Dosage: SECOND INFUSION
     Route: 042
     Dates: start: 20111207
  2. MAXALT [Concomitant]
     Route: 065
  3. IMOVAN [Concomitant]
     Route: 065
  4. ELAVIL [Concomitant]
     Route: 065
  5. YASMIN [Concomitant]
     Route: 065
  6. REMICADE [Suspect]
     Indication: CROHN'S DISEASE
     Route: 042
     Dates: start: 20111011
  7. SYNTHROID [Concomitant]
     Route: 065
  8. PREVACID [Concomitant]
     Route: 065

REACTIONS (1)
  - TONSILLAR NEOPLASM [None]
